FAERS Safety Report 8221789-X (Version None)
Quarter: 2012Q1

REPORT INFORMATION
  Report Type: 
  Country: None (occurrence: None)
  Receive Date: 20120320
  Receipt Date: 20120320
  Transmission Date: 20120608
  Serious: No
  Sender: FDA-Public Use
  Company Number: None

PATIENT
  Age: 56 Year
  Sex: Female
  Weight: 39.462 kg

DRUGS (1)
  1. RANEXA [Suspect]
     Indication: CHEST PAIN
     Route: 048
     Dates: start: 20111115, end: 20120319

REACTIONS (5)
  - PRODUCTIVE COUGH [None]
  - ABDOMINAL PAIN [None]
  - VISION BLURRED [None]
  - SOMNOLENCE [None]
  - MEMORY IMPAIRMENT [None]
